FAERS Safety Report 14744757 (Version 1)
Quarter: 2018Q2

REPORT INFORMATION
  Report Type: Spontaneous
  Country: US (occurrence: US)
  Receive Date: 20180411
  Receipt Date: 20180411
  Transmission Date: 20180711
  Serious: Yes (Death, Other)
  Sender: FDA-Public Use
  Company Number: US-RECORDATI RARE DISEASES INC.-US-R13005-18-00086

PATIENT
  Age: 7 Year
  Sex: Male

DRUGS (10)
  1. VINCRISTINE [Suspect]
     Active Substance: VINCRISTINE
     Indication: RHABDOID TUMOUR
     Route: 065
  2. DOXORUBICIN [Suspect]
     Active Substance: DOXORUBICIN
     Indication: RHABDOID TUMOUR
     Route: 065
  3. CISPLATINUM [Suspect]
     Active Substance: CISPLATIN
     Indication: RHABDOID TUMOUR
     Route: 065
  4. HYDROCORTISONE. [Suspect]
     Active Substance: HYDROCORTISONE
     Indication: RHABDOID TUMOUR
     Route: 037
  5. CYCLOPHOSPHAMIDE. [Suspect]
     Active Substance: CYCLOPHOSPHAMIDE
     Indication: RHABDOID TUMOUR
     Route: 065
  6. DACTINOMYCIN [Suspect]
     Active Substance: DACTINOMYCIN
     Indication: RHABDOID TUMOUR
     Route: 065
  7. ETOPOSIDE. [Suspect]
     Active Substance: ETOPOSIDE
     Indication: RHABDOID TUMOUR
     Route: 065
  8. TEMOZOLOMIDE. [Suspect]
     Active Substance: TEMOZOLOMIDE
     Indication: RHABDOID TUMOUR
     Route: 065
  9. ARA-C [Suspect]
     Active Substance: CYTARABINE
     Indication: RHABDOID TUMOUR
     Route: 037
  10. METHOTREXATE. [Suspect]
     Active Substance: METHOTREXATE
     Indication: RHABDOID TUMOUR
     Route: 037

REACTIONS (7)
  - Disease progression [Fatal]
  - Mucosal inflammation [Unknown]
  - Bone marrow failure [Unknown]
  - Radiation skin injury [Unknown]
  - Gastrostomy [Unknown]
  - Atypical teratoid/rhabdoid tumour of CNS [Fatal]
  - Off label use [Unknown]
